FAERS Safety Report 16089279 (Version 1)
Quarter: 2019Q2

REPORT INFORMATION
  Report Type: Spontaneous
  Country: US (occurrence: US)
  Receive Date: 20190319
  Receipt Date: 20190319
  Transmission Date: 20190711
  Serious: Yes (Other)
  Sender: FDA-Public Use
  Company Number: None

PATIENT
  Age: 74 Year
  Sex: Female

DRUGS (17)
  1. FOLIC ACID 1000MCG TABLETS [Concomitant]
     Dates: start: 20190107
  2. LYRICA 50MG CAPSULES [Concomitant]
  3. AMLODIPINE [Concomitant]
     Active Substance: AMLODIPINE BESYLATE
     Dates: start: 20190131
  4. ATORVASTATIN 10MG TABLETS [Concomitant]
     Active Substance: ATORVASTATIN
     Dates: start: 20190118
  5. FUROSEMIDE 40MG TABLETS [Concomitant]
     Dates: start: 20190218
  6. OMEPRAZOLE 40MG CAPSULES [Concomitant]
     Active Substance: OMEPRAZOLE
     Dates: start: 20181217
  7. ZOLPIDEM ER 6.25MG TABLETS [Concomitant]
     Dates: start: 20190310
  8. BUSPIRONE 10MG TABLETS [Concomitant]
     Dates: start: 20190218
  9. HYDROXYCHLOROQUINE 200MG TABLETS [Concomitant]
     Active Substance: HYDROXYCHLOROQUINE
     Dates: start: 20190206
  10. LOSARTAN POTASSIUM 100MG TABLETS [Concomitant]
     Dates: start: 20190118
  11. DULOXETINE 60MG CAPSULES [Concomitant]
     Dates: start: 20190216
  12. XELJANZ XR [Suspect]
     Active Substance: TOFACITINIB CITRATE
     Indication: RHEUMATOID ARTHRITIS
     Route: 048
  13. TIZANIDINE 4MG TABLETS [Concomitant]
     Active Substance: TIZANIDINE HYDROCHLORIDE
     Dates: start: 20190304
  14. MUPIROCIN OINTMENT  2% [Concomitant]
     Active Substance: MUPIROCIN
     Dates: start: 20190218
  15. METOPROLOL TARTRATE 25MG TABLETS [Concomitant]
     Active Substance: METOPROLOL TARTRATE
     Dates: start: 20190107
  16. LORAZEPAM 0.5MG TABLETS [Concomitant]
     Active Substance: LORAZEPAM
     Dates: start: 20190318
  17. ROPINROLE 1MG TABLETS [Concomitant]
     Dates: start: 20190217

REACTIONS (1)
  - Mouth haemorrhage [None]

NARRATIVE: CASE EVENT DATE: 20190318
